FAERS Safety Report 9221711 (Version 2)
Quarter: 2013Q2

REPORT INFORMATION
  Report Type: Spontaneous
  Country: GB (occurrence: None)
  Receive Date: 20130408
  Receipt Date: 20130415
  Transmission Date: 20140414
  Serious: Yes (Hospitalization)
  Sender: FDA-Public Use
  Company Number: AUR-APL-2013-02610

PATIENT
  Sex: Female

DRUGS (5)
  1. RAMIPRIL [Suspect]
     Indication: HYPERTENSION
  2. SIMVASTATIN [Suspect]
     Indication: HYPERCHOLESTEROLAEMIA
  3. AMLODIPINE [Suspect]
     Indication: HYPERTENSION
  4. ATORVASTATIN [Suspect]
     Indication: HYPERTENSION
  5. BENDROFLUMETHIAZIDE (BENDROFLUMETHIAZIDE) [Concomitant]

REACTIONS (23)
  - Swollen tongue [None]
  - Oedema peripheral [None]
  - Paraesthesia [None]
  - Dizziness [None]
  - Malaise [None]
  - Cyanosis [None]
  - Feeling hot [None]
  - Back pain [None]
  - Shock [None]
  - Muscle twitching [None]
  - Heart rate increased [None]
  - Hypoaesthesia [None]
  - Pain in extremity [None]
  - Hypersomnia [None]
  - Drug interaction [None]
  - Blood pressure increased [None]
  - Cellulitis [None]
  - Drug hypersensitivity [None]
  - Malaise [None]
  - Emotional distress [None]
  - Hypoaesthesia [None]
  - Muscle tightness [None]
  - Skin discolouration [None]
